FAERS Safety Report 5723746-1 (Version None)
Quarter: 2008Q2

REPORT INFORMATION
  Report Type: 
  Country: None (occurrence: None)
  Receive Date: 20080430
  Receipt Date: 20080423
  Transmission Date: 20081010
  Serious: Yes (Other)
  Sender: FDA-Public Use
  Company Number: US-JNJFOC-20080406934

PATIENT
  Age: 42 Year
  Sex: Male
  Weight: 108.86 kg

DRUGS (1)
  1. LEVOFLOXACIN [Suspect]
     Indication: LOWER RESPIRATORY TRACT INFECTION
     Route: 048
     Dates: start: 20080420, end: 20080421

REACTIONS (1)
  - BLINDNESS TRANSIENT [None]
